FAERS Safety Report 4437655-1 (Version None)
Quarter: 2004Q3

REPORT INFORMATION
  Report Type: 
  Country: None (occurrence: None)
  Receive Date: 20040827
  Receipt Date: 20040816
  Transmission Date: 20050211
  Serious: Yes (Hospitalization, Other)
  Sender: FDA-Public Use
  Company Number: 8715

PATIENT
  Age: 23 Year
  Sex: Male

DRUGS (5)
  1. METHOTREXATE [Suspect]
     Indication: CHEMOTHERAPY
     Dosage: 650 MG   IV
     Route: 042
     Dates: start: 20040518
  2. METHOTREXATE [Suspect]
     Indication: CHEMOTHERAPY
     Dosage: 5800 MG  IV
     Route: 042
     Dates: start: 20040519, end: 20040519
  3. DEPOCYTE [Suspect]
     Indication: ACUTE LYMPHOCYTIC LEUKAEMIA
     Dosage: 50 MG ONCE IT
     Route: 038
     Dates: start: 20040517, end: 20040517
  4. FOLINIC ACID [Suspect]
     Indication: CHEMOTHERAPY
     Dosage: 45 MG QID IV
     Route: 042
     Dates: start: 20040519
  5. ASPARAGINASE [Suspect]
     Indication: CHEMOTHERAPY
     Dosage: 100000 IU  IM
     Route: 030
     Dates: start: 20040519, end: 20040519

REACTIONS (5)
  - HEADACHE [None]
  - NAUSEA [None]
  - OXYGEN SATURATION DECREASED [None]
  - PYREXIA [None]
  - VOMITING [None]
